FAERS Safety Report 9159293 (Version 1)
Quarter: 2013Q1

REPORT INFORMATION
  Report Type: Spontaneous
  Country: CH (occurrence: None)
  Receive Date: 20130213
  Receipt Date: 20130213
  Transmission Date: 20140127
  Serious: Yes (Other)
  Sender: FDA-Public Use
  Company Number: 2013ST000038

PATIENT
  Age: 4 Month
  Sex: Female

DRUGS (2)
  1. OMEPRAZOLE (OMEPRAZOLE) [Suspect]
     Indication: GASTROOESOPHAGEAL REFLUX DISEASE
  2. ESOMEPRAZOLE [Suspect]

REACTIONS (5)
  - Respiratory distress [None]
  - Use of accessory respiratory muscles [None]
  - Tachypnoea [None]
  - Wheezing [None]
  - Face oedema [None]
